FAERS Safety Report 7642475-0 (Version None)
Quarter: 2011Q3

REPORT INFORMATION
  Report Type: 
  Country: None (occurrence: None)
  Receive Date: 20110728
  Receipt Date: 20110718
  Transmission Date: 20111222
  Serious: Yes (Hospitalization, Other)
  Sender: FDA-Public Use
  Company Number: US-ELI_LILLY_AND_COMPANY-US201106001436

PATIENT
  Sex: Male

DRUGS (7)
  1. NEURONTIN [Concomitant]
     Indication: NEUROPATHY PERIPHERAL
     Dosage: 800 MG, UNK
  2. SIMVASTATIN [Concomitant]
     Dosage: 40 MG, UNK
  3. NEXIUM [Concomitant]
     Dosage: 40 MG, UNK
  4. ETHANOL [Concomitant]
  5. COUMADIN [Concomitant]
     Indication: FACTOR V LEIDEN MUTATION
     Dosage: 5 MG, UNK
  6. CIALIS [Suspect]
     Indication: ERECTILE DYSFUNCTION
     Dosage: 20 MG, UNKNOWN
     Dates: start: 20090101
  7. ZYRTEC [Concomitant]
     Dosage: 10 MG, UNK

REACTIONS (9)
  - CHILLS [None]
  - SYNCOPE [None]
  - FALL [None]
  - HEAD INJURY [None]
  - FLUSHING [None]
  - DIZZINESS [None]
  - DYSPNOEA [None]
  - LIMB DISCOMFORT [None]
  - NEUROPATHY PERIPHERAL [None]
